FAERS Safety Report 26068063 (Version 1)
Quarter: 2025Q4

REPORT INFORMATION
  Report Type: Report from Study
  Country: US (occurrence: US)
  Receive Date: 20251120
  Receipt Date: 20251120
  Transmission Date: 20260117
  Serious: Yes (Other)
  Sender: ABBVIE
  Company Number: US-ABBVIE-6554455

PATIENT
  Sex: Male

DRUGS (1)
  1. IMBRUVICA [Suspect]
     Active Substance: IBRUTINIB
     Indication: Product used for unknown indication
     Dosage: WITHHELD 7 DOSES
     Route: 048

REACTIONS (2)
  - Prostatic operation [Not Recovered/Not Resolved]
  - Blood urine present [Not Recovered/Not Resolved]
